FAERS Safety Report 8711224 (Version 4)
Quarter: 2014Q1

REPORT INFORMATION
  Report Type: Spontaneous
  Country: US (occurrence: US)
  Receive Date: 20120807
  Receipt Date: 20140122
  Transmission Date: 20141002
  Serious: Yes (Hospitalization, Other)
  Sender: FDA-Public Use
  Company Number: US-ALEXION-A201201419

PATIENT
  Age: 63 Year
  Sex: Female
  Weight: 74.38 kg

DRUGS (20)
  1. SOLIRIS 300MG [Suspect]
     Indication: HAEMOLYTIC URAEMIC SYNDROME
     Dosage: 900 MG, QW
     Route: 042
     Dates: start: 20120626, end: 20120718
  2. SOLIRIS 300MG [Suspect]
     Indication: TRANSPLANT REJECTION
  3. BACTRIM [Suspect]
     Indication: ANTIFUNGAL PROPHYLAXIS
     Dosage: 400 MG / 60, QD
     Route: 048
     Dates: start: 20120608, end: 20120610
  4. AMLODIPINE [Concomitant]
     Indication: HYPERTENSION
     Dosage: 5 MG, QD
     Route: 048
  5. VITAMIN C [Concomitant]
     Indication: SUPPLEMENTATION THERAPY
     Dosage: 500 MG, BID
     Route: 048
  6. CALCIUM CARBONATE [Concomitant]
     Indication: SUPPLEMENTATION THERAPY
     Dosage: 1 G X5, QD
     Route: 048
  7. COREG [Concomitant]
     Indication: HYPERTENSION
     Dosage: 12.5 MG, BID
     Route: 048
  8. VITAMIN D [Concomitant]
     Indication: SUPPLEMENTATION THERAPY
     Dosage: 1000 U, QD
     Route: 048
  9. CYCLOSPORINE [Concomitant]
     Indication: PROPHYLAXIS AGAINST TRANSPLANT REJECTION
     Dosage: 225 MG, BID
     Route: 048
  10. ARANESP [Concomitant]
     Indication: ANAEMIA
     Dosage: 200 MCG, QMONTH
     Route: 058
  11. FOLIC ACID [Concomitant]
     Indication: SUPPLEMENTATION THERAPY
     Dosage: 1 G, QD
     Route: 048
  12. LASIX [Concomitant]
     Indication: FLUID RETENTION
     Dosage: 40 MG, QD
     Route: 048
  13. IRON [Concomitant]
     Indication: MINERAL SUPPLEMENTATION
     Dosage: 150 MG, BID
     Route: 048
  14. IRON [Concomitant]
     Indication: ANAEMIA
  15. PREDNISONE [Concomitant]
     Indication: PROPHYLAXIS AGAINST TRANSPLANT REJECTION
     Dosage: 5 MG, QD
     Route: 048
  16. MAGNESIUM OXIDE [Concomitant]
     Indication: MINERAL SUPPLEMENTATION
     Dosage: 400 MG, BID
     Route: 048
  17. MYFORTIC [Concomitant]
     Indication: PROPHYLAXIS AGAINST TRANSPLANT REJECTION
     Dosage: 720 MG, BID
     Route: 048
  18. VALCYTE [Concomitant]
     Indication: INFECTION PROPHYLAXIS
     Dosage: 450 MG TWICE A WEEK
     Route: 048
  19. VALCYTE [Concomitant]
     Indication: ANTIVIRAL PROPHYLAXIS
     Dosage: 450 MG, QD
     Route: 048
     Dates: start: 20120801
  20. PENTAMIDINE [Concomitant]
     Indication: ANTIFUNGAL PROPHYLAXIS
     Dosage: 300 ?G, QD
     Dates: start: 20120726

REACTIONS (7)
  - Acute hepatic failure [Not Recovered/Not Resolved]
  - Toxicity to various agents [Not Recovered/Not Resolved]
  - Plasmapheresis [Unknown]
  - Abdominal pain [Unknown]
  - Oedema [Unknown]
  - Diarrhoea [Unknown]
  - Fatigue [Unknown]
